FAERS Safety Report 12334915 (Version 1)
Quarter: 2016Q2

REPORT INFORMATION
  Report Type: Spontaneous
  Country: US (occurrence: US)
  Receive Date: 20160504
  Receipt Date: 20160504
  Transmission Date: 20160815
  Serious: Yes (Hospitalization, Other)
  Sender: FDA-Public Use
  Company Number: US-GLAXOSMITHKLINE-US2016GSK060748

PATIENT
  Age: 24 Year
  Sex: Female

DRUGS (1)
  1. LAMOTRIGINE (HEXAL AG) [Suspect]
     Active Substance: LAMOTRIGINE
     Indication: BIPOLAR DISORDER
     Dosage: UNK
     Dates: start: 2013

REACTIONS (7)
  - Skin exfoliation [Unknown]
  - Hypersensitivity [Unknown]
  - Alopecia [Unknown]
  - Stevens-Johnson syndrome [Unknown]
  - Rash [Unknown]
  - Oral mucosal blistering [Unknown]
  - Visual impairment [Unknown]
